FAERS Safety Report 22278172 (Version 1)
Quarter: 2023Q2

REPORT INFORMATION
  Report Type: Spontaneous
  Country: US (occurrence: None)
  Receive Date: 20230502
  Receipt Date: 20230502
  Transmission Date: 20230722
  Serious: Yes (Death)
  Sender: FDA-Public Use
  Company Number: None

PATIENT
  Age: 86 Year
  Sex: Female
  Weight: 68.04 kg

DRUGS (11)
  1. CAPECITABINE [Suspect]
     Active Substance: CAPECITABINE
     Indication: Colon cancer
     Dosage: FREQUENCY : TWICE A DAY;?
     Route: 048
  2. CAPECITABINE [Suspect]
     Active Substance: CAPECITABINE
     Indication: Colon cancer
     Dosage: FREQUENCY : TWICE A DAY;?
     Route: 048
  3. ACETAMINOOPHEN [Concomitant]
  4. CALTRATE 600+D3 SOFT [Concomitant]
  5. CENTRUM [Concomitant]
  6. COLACE [Concomitant]
     Active Substance: DOCUSATE SODIUM
  7. CRESTOR [Concomitant]
  8. FISH OIL [Concomitant]
  9. OXYCODONE [Concomitant]
  10. TRAMADOL [Concomitant]
  11. XARELTO [Concomitant]

REACTIONS (2)
  - Extra dose administered [None]
  - Adverse event [None]

NARRATIVE: CASE EVENT DATE: 20230423
